FAERS Safety Report 17664372 (Version 4)
Quarter: 2022Q2

REPORT INFORMATION
  Report Type: Spontaneous
  Country: US (occurrence: None)
  Receive Date: 20200414
  Receipt Date: 20220512
  Transmission Date: 20220720
  Serious: Yes (Death, Other)
  Sender: FDA-Public Use
  Company Number: 2019SE09607

PATIENT
  Age: 25371 Day
  Sex: Female
  Weight: 54.4 kg

DRUGS (102)
  1. NEXIUM [Suspect]
     Active Substance: ESOMEPRAZOLE MAGNESIUM
     Indication: Gastrooesophageal reflux disease
     Dosage: FOR VARIOUS DATES AND YEARS
     Route: 048
     Dates: start: 2009
  2. NEXIUM [Suspect]
     Active Substance: ESOMEPRAZOLE MAGNESIUM
     Indication: Gastrooesophageal reflux disease
     Route: 048
     Dates: start: 20141103
  3. NEXIUM [Suspect]
     Active Substance: ESOMEPRAZOLE MAGNESIUM
     Indication: Gastrooesophageal reflux disease
     Route: 048
     Dates: start: 2014
  4. NEXIUM [Suspect]
     Active Substance: ESOMEPRAZOLE MAGNESIUM
     Indication: Gastrooesophageal reflux disease
     Route: 048
     Dates: start: 20140103
  5. NEXIUM [Suspect]
     Active Substance: ESOMEPRAZOLE MAGNESIUM
     Indication: Gastrooesophageal reflux disease
     Dosage: GENERIC
     Route: 065
     Dates: start: 201412
  6. OMEPRAZOLE [Suspect]
     Active Substance: OMEPRAZOLE
     Indication: Gastrooesophageal reflux disease
     Dosage: GENERIC
     Route: 065
     Dates: start: 2018
  7. DEXILANT [Suspect]
     Active Substance: DEXLANSOPRAZOLE
     Indication: Gastrooesophageal reflux disease
     Dosage: FOR VARIOUS DATES AND YEARS
     Route: 065
     Dates: start: 2009
  8. DEXILANT [Suspect]
     Active Substance: DEXLANSOPRAZOLE
     Indication: Gastrooesophageal reflux disease
     Route: 065
     Dates: start: 20150103
  9. DEXILANT [Suspect]
     Active Substance: DEXLANSOPRAZOLE
     Indication: Gastrooesophageal reflux disease
     Route: 065
     Dates: start: 2015, end: 2018
  10. DEXILANT [Suspect]
     Active Substance: DEXLANSOPRAZOLE
     Indication: Gastrooesophageal reflux disease
     Dosage: GENERIC
     Route: 065
     Dates: start: 2015, end: 2018
  11. DEXILANT [Suspect]
     Active Substance: DEXLANSOPRAZOLE
     Indication: Gastrooesophageal reflux disease
     Route: 065
     Dates: start: 20150103, end: 2018
  12. DEXILANT [Suspect]
     Active Substance: DEXLANSOPRAZOLE
     Indication: Gastrooesophageal reflux disease
     Dosage: GENERIC
     Route: 065
     Dates: start: 201504
  13. PROTONIX [Suspect]
     Active Substance: PANTOPRAZOLE SODIUM
     Indication: Gastrooesophageal reflux disease
     Dosage: FOR VARIOUS DATES AND YEARS
     Route: 065
     Dates: start: 2009
  14. PROTONIX [Suspect]
     Active Substance: PANTOPRAZOLE SODIUM
     Indication: Gastrooesophageal reflux disease
     Route: 065
     Dates: start: 20090328
  15. PROTONIX [Suspect]
     Active Substance: PANTOPRAZOLE SODIUM
     Indication: Gastrooesophageal reflux disease
     Route: 065
     Dates: start: 2009, end: 2010
  16. PROTONIX [Suspect]
     Active Substance: PANTOPRAZOLE SODIUM
     Indication: Gastrooesophageal reflux disease
     Dosage: GENERIC
     Route: 065
     Dates: start: 2010, end: 2014
  17. PROTONIX [Suspect]
     Active Substance: PANTOPRAZOLE SODIUM
     Indication: Gastrooesophageal reflux disease
     Route: 065
     Dates: start: 20090328, end: 2010
  18. VITAMIN D3 [Concomitant]
     Active Substance: CHOLECALCIFEROL
  19. ALLOPURINOL [Concomitant]
     Active Substance: ALLOPURINOL
     Indication: Gout
     Dates: start: 2010, end: 2018
  20. LASIX [Concomitant]
     Active Substance: FUROSEMIDE
     Indication: Oedema
     Dates: start: 2009, end: 2013
  21. REVATIO [Concomitant]
     Active Substance: SILDENAFIL CITRATE
  22. TRACLEER [Concomitant]
     Active Substance: BOSENTAN
  23. PLAQUENIL [Concomitant]
     Active Substance: HYDROXYCHLOROQUINE SULFATE
  24. NORVASC [Concomitant]
     Active Substance: AMLODIPINE BESYLATE
  25. EPOPROSTENOL [Concomitant]
     Active Substance: EPOPROSTENOL
  26. CITRACAL+D [Concomitant]
  27. ASPIRIN [Concomitant]
     Active Substance: ASPIRIN
  28. COLACE [Concomitant]
     Active Substance: DOCUSATE SODIUM
  29. LEVAQUIN [Concomitant]
     Active Substance: LEVOFLOXACIN
  30. DELTASONE [Concomitant]
     Active Substance: PREDNISONE
  31. CELLCEPT [Concomitant]
     Active Substance: MYCOPHENOLATE MOFETIL
  32. OPSUMIT [Concomitant]
     Active Substance: MACITENTAN
  33. SINGULAIR [Concomitant]
     Active Substance: MONTELUKAST SODIUM
  34. PHOSLO [Concomitant]
     Active Substance: CALCIUM ACETATE
  35. LIPITOR [Concomitant]
     Active Substance: ATORVASTATIN CALCIUM
     Indication: Blood cholesterol abnormal
     Dates: start: 2010, end: 2014
  36. ZOFRAN ODT [Concomitant]
     Active Substance: ONDANSETRON HYDROCHLORIDE
  37. KLONOPIN [Concomitant]
     Active Substance: CLONAZEPAM
  38. EVISTA [Concomitant]
     Active Substance: RALOXIFENE HYDROCHLORIDE
  39. SERTRALINE [Concomitant]
     Active Substance: SERTRALINE HYDROCHLORIDE
  40. HYDROCHLOROTHIAZIDE [Concomitant]
     Active Substance: HYDROCHLOROTHIAZIDE
  41. ACETYLCYSTEINE [Concomitant]
     Active Substance: ACETYLCYSTEINE
  42. METHYLPREDNISOLONE [Concomitant]
     Active Substance: METHYLPREDNISOLONE
  43. TORSEMIDE [Concomitant]
     Active Substance: TORSEMIDE
     Indication: Oedema
     Dates: start: 2013, end: 2017
  44. PROCRIT [Concomitant]
     Active Substance: ERYTHROPOIETIN
  45. PLAVIX [Concomitant]
     Active Substance: CLOPIDOGREL BISULFATE
  46. DIOVAN [Concomitant]
     Active Substance: VALSARTAN
  47. PENICILLIN [Concomitant]
     Active Substance: PENICILLIN
  48. DOXYCYCLINE [Concomitant]
     Active Substance: DOXYCYCLINE
  49. MOXIFLOXACIN [Concomitant]
     Active Substance: MOXIFLOXACIN
  50. CIPROFLOXACIN [Concomitant]
     Active Substance: CIPROFLOXACIN
  51. ALPRAZOLAM [Concomitant]
     Active Substance: ALPRAZOLAM
  52. LISINOPRIL [Concomitant]
     Active Substance: LISINOPRIL
  53. CYCLOBENZAPRINE [Concomitant]
     Active Substance: CYCLOBENZAPRINE
  54. PATADAY [Concomitant]
     Active Substance: OLOPATADINE HYDROCHLORIDE
  55. COLCRYS [Concomitant]
     Active Substance: COLCHICINE
  56. ZOLPIDEM TARTRATE [Concomitant]
     Active Substance: ZOLPIDEM TARTRATE
  57. FLUTICASONE PROPIONATE [Concomitant]
     Active Substance: FLUTICASONE PROPIONATE
  58. AZELASTINE [Concomitant]
     Active Substance: AZELASTINE
  59. ADCIRCA [Concomitant]
     Active Substance: TADALAFIL
  60. IPRATROPIUM BROMIDE [Concomitant]
     Active Substance: IPRATROPIUM BROMIDE
  61. FLUNISOLIDE [Concomitant]
     Active Substance: FLUNISOLIDE
  62. PROCHLORPERAZINE MALEATE [Concomitant]
     Active Substance: PROCHLORPERAZINE MALEATE
  63. CEPHALEXIN [Concomitant]
     Active Substance: CEPHALEXIN
  64. CALCITRIOL [Concomitant]
     Active Substance: CALCITRIOL
  65. SUCRALFATE [Concomitant]
     Active Substance: SUCRALFATE
  66. GABAPENTIN [Concomitant]
     Active Substance: GABAPENTIN
  67. DUREZOL [Concomitant]
     Active Substance: DIFLUPREDNATE
  68. MIDODRINE [Concomitant]
     Active Substance: MIDODRINE
  69. ESCITALOPRAM [Concomitant]
     Active Substance: ESCITALOPRAM OXALATE
  70. LETAIRIS [Concomitant]
     Active Substance: AMBRISENTAN
  71. SALOMEN [Concomitant]
  72. SUTTER [Concomitant]
  73. CLOPIDOGREL [Concomitant]
     Active Substance: CLOPIDOGREL BISULFATE
  74. LEVRO [Concomitant]
  75. POLYETHYLENE GLYCOL [Concomitant]
     Active Substance: POLYETHYLENE GLYCOL
  76. POTASSIUM CHLORIDE [Concomitant]
     Active Substance: POTASSIUM CHLORIDE
  77. METOLAZONE [Concomitant]
     Active Substance: METOLAZONE
  78. GATIFLOXACIN [Concomitant]
     Active Substance: GATIFLOXACIN
  79. FLUCONAZOLE [Concomitant]
     Active Substance: FLUCONAZOLE
  80. ROBITUSSIN (GUAIFENESIN) [Concomitant]
     Active Substance: GUAIFENESIN
  81. DOXYCYCLINE [Concomitant]
     Active Substance: DOXYCYCLINE
  82. VIRTUSSIN [Concomitant]
  83. FOLIC ACID [Concomitant]
     Active Substance: FOLIC ACID
  84. CALCIUM [Concomitant]
     Active Substance: CALCIUM
  85. DIPHENOXYLATE/ ATROPINE [Concomitant]
  86. SULFAMETHOXAZOLE\TRIMETHOPRIM [Concomitant]
     Active Substance: SULFAMETHOXAZOLE\TRIMETHOPRIM
  87. XOPENEX [Concomitant]
     Active Substance: LEVALBUTEROL HYDROCHLORIDE
  88. PROCHLORPERAZINE [Concomitant]
     Active Substance: PROCHLORPERAZINE
  89. MYFORTIC [Concomitant]
     Active Substance: MYCOPHENOLATE SODIUM
  90. FERROUS SULFATE [Concomitant]
     Active Substance: FERROUS SULFATE
  91. COMBIVENT [Concomitant]
     Active Substance: ALBUTEROL SULFATE\IPRATROPIUM BROMIDE
  92. VALACYCLOVIR [Concomitant]
     Active Substance: VALACYCLOVIR HYDROCHLORIDE
  93. VITAMIN B12 [Concomitant]
     Active Substance: CYANOCOBALAMIN
  94. LACTOBACILLUS ACIDOPHILUS/ZINC OXIDE [Concomitant]
  95. DILAUDID [Concomitant]
     Active Substance: HYDROMORPHONE HYDROCHLORIDE
  96. ZOSYN [Concomitant]
     Active Substance: PIPERACILLIN SODIUM\TAZOBACTAM SODIUM
  97. PARICALCITOL [Concomitant]
     Active Substance: PARICALCITOL
  98. HEXACHLOROPHENE/RETINOL PALMITATE/ALLANTOIN/DL-ALPHA TOCOPHERYL ACETAT [Concomitant]
  99. HEPARIN [Concomitant]
     Active Substance: HEPARIN SODIUM
  100. TIGAN [Concomitant]
     Active Substance: TRIMETHOBENZAMIDE HYDROCHLORIDE
  101. HECTOROL [Concomitant]
     Active Substance: DOXERCALCIFEROL
  102. EMLA [Concomitant]
     Active Substance: LIDOCAINE\PRILOCAINE

REACTIONS (11)
  - Death [Fatal]
  - Chronic kidney disease [Not Recovered/Not Resolved]
  - Acute kidney injury [Unknown]
  - End stage renal disease [Not Recovered/Not Resolved]
  - Renal failure [Unknown]
  - Nephrogenic anaemia [Unknown]
  - Chronic kidney disease-mineral and bone disorder [Unknown]
  - Hyperparathyroidism secondary [Unknown]
  - Hypocalcaemia [Unknown]
  - Anion gap abnormal [Unknown]
  - Rebound acid hypersecretion [Unknown]

NARRATIVE: CASE EVENT DATE: 20171105
